FAERS Safety Report 4501814-X (Version None)
Quarter: 2004Q3

REPORT INFORMATION
  Report Type: 
  Country: None (occurrence: None)
  Receive Date: 20040928
  Receipt Date: 20040602
  Transmission Date: 20050211
  Serious: No
  Sender: FDA-Public Use
  Company Number: 04P-163-0262593-00

PATIENT
  Age: 72 Year
  Sex: Female
  Weight: 90.7194 kg

DRUGS (7)
  1. HUMIRA [Suspect]
     Indication: RHEUMATOID ARTHRITIS
     Dosage: 40 MG 1 IN 2 WK SUBCUTANEOUS
     Route: 058
     Dates: start: 20040305
  2. BUCINDOLOL HYDROCHLORIDE [Concomitant]
  3. HYDROXYCHLOROQUINE PHOSPHATE [Concomitant]
  4. MAXZIDE [Concomitant]
  5. PROGESTERONE [Concomitant]
  6. COD-LIVER OIL [Concomitant]
  7. MULTIVITAMIN [Concomitant]

REACTIONS (3)
  - CONDITION AGGRAVATED [None]
  - MUSCLE SPASMS [None]
  - RHEUMATOID ARTHRITIS [None]
